FAERS Safety Report 23918016 (Version 1)
Quarter: 2024Q2

REPORT INFORMATION
  Report Type: Spontaneous
  Country: JP (occurrence: JP)
  Receive Date: 20240530
  Receipt Date: 20240530
  Transmission Date: 20240716
  Serious: Yes (Hospitalization)
  Sender: FDA-Public Use
  Company Number: JP-TAKEDA-2024TJP007692

PATIENT
  Age: 77 Year
  Sex: Female

DRUGS (1)
  1. ALUNBRIG [Suspect]
     Active Substance: BRIGATINIB
     Indication: Lung adenocarcinoma stage IV
     Route: 065

REACTIONS (1)
  - Pleurisy [Recovering/Resolving]
